FAERS Safety Report 25392230 (Version 1)
Quarter: 2025Q2

REPORT INFORMATION
  Report Type: Report from Study
  Country: US (occurrence: US)
  Receive Date: 20250603
  Receipt Date: 20250603
  Transmission Date: 20250716
  Serious: Yes (Hospitalization, Other)
  Sender: MALLINCKRODT
  Company Number: US-MALLINCKRODT-MNK202500587

PATIENT
  Sex: Female

DRUGS (2)
  1. CORTICOTROPIN [Suspect]
     Active Substance: CORTICOTROPIN
     Indication: Polymyositis
     Route: 030
  2. CORTICOTROPIN [Suspect]
     Active Substance: CORTICOTROPIN

REACTIONS (8)
  - Blood creatine phosphokinase increased [Recovered/Resolved]
  - Loss of consciousness [Recovered/Resolved]
  - Influenza [Not Recovered/Not Resolved]
  - Mobility decreased [Unknown]
  - Influenza like illness [Recovered/Resolved]
  - Injection site discolouration [Unknown]
  - Rash [Unknown]
  - Vomiting [Recovered/Resolved]
